FAERS Safety Report 10810551 (Version 1)
Quarter: 2015Q1

REPORT INFORMATION
  Report Type: Spontaneous
  Country: US (occurrence: None)
  Receive Date: 20150212
  Receipt Date: 20150212
  Transmission Date: 20150721
  Serious: Yes (Other)
  Sender: FDA-Public Use
  Company Number: None

PATIENT
  Age: 56 Year
  Sex: Female
  Weight: 63.5 kg

DRUGS (1)
  1. GRALISE [Suspect]
     Active Substance: GABAPENTIN
     Indication: INTERVERTEBRAL DISC PROTRUSION
     Dosage: 3 PILLS, TAKEN BY MOUTH
     Route: 048
     Dates: start: 20141212, end: 20150125

REACTIONS (8)
  - Hyperchlorhydria [None]
  - Dyspepsia [None]
  - Diarrhoea [None]
  - Abdominal distension [None]
  - Peripheral swelling [None]
  - Weight increased [None]
  - Local swelling [None]
  - Swelling face [None]

NARRATIVE: CASE EVENT DATE: 20150116
